FAERS Safety Report 8821128 (Version 1)
Quarter: 2012Q4

REPORT INFORMATION
  Report Type: 
  Country: US (occurrence: US)
  Receive Date: 20121002
  Receipt Date: 20121002
  Transmission Date: 20130627
  Serious: Yes (Death, Hospitalization)
  Sender: FDA-Public Use
  Company Number: US-ARROW-2012-17007

PATIENT
  Age: 53 Year
  Sex: Female

DRUGS (1)
  1. PREDNISONE (UNKNOWN) [Suspect]
     Indication: RETINAL PIGMENT EPITHELIOPATHY
     Dosage: 80 mg, daily
     Route: 048

REACTIONS (2)
  - Vasculitis cerebral [Fatal]
  - Steroid withdrawal syndrome [Fatal]
